FAERS Safety Report 18144883 (Version 1)
Quarter: 2020Q3

REPORT INFORMATION
  Report Type: Spontaneous
  Country: US (occurrence: US)
  Receive Date: 20200813
  Receipt Date: 20200813
  Transmission Date: 20201103
  Serious: No
  Sender: FDA-Public Use
  Company Number: None

PATIENT
  Age: 63 Year
  Sex: Female

DRUGS (2)
  1. AROMASIN [Concomitant]
     Active Substance: EXEMESTANE
  2. EVEROLIMUS TAB 7.5MG [Suspect]
     Active Substance: EVEROLIMUS
     Route: 048
     Dates: start: 202004

REACTIONS (2)
  - Off label use [None]
  - Tumour marker increased [None]

NARRATIVE: CASE EVENT DATE: 20200813
